FAERS Safety Report 10167859 (Version 1)
Quarter: 2014Q2

REPORT INFORMATION
  Report Type: Spontaneous
  Country: US (occurrence: US)
  Receive Date: 20140512
  Receipt Date: 20140512
  Transmission Date: 20141212
  Serious: No
  Sender: FDA-Public Use
  Company Number: US-PFIZER INC-2014126869

PATIENT
  Age: 64 Year
  Sex: Male
  Weight: 69.84 kg

DRUGS (4)
  1. LYRICA [Suspect]
     Indication: NEURALGIA
     Dosage: UNK
  2. LYRICA [Suspect]
     Indication: NEUROPATHY PERIPHERAL
     Dosage: 300 MG, DAILY
  3. LYRICA [Suspect]
     Dosage: 375 MG, DAILY (75MG IN MORNING AND 150MG (TWO 75MG CAPSULES) TWO TIMES A DAY)
     Dates: start: 201404
  4. LIPITOR [Concomitant]
     Indication: BLOOD CHOLESTEROL ABNORMAL
     Dosage: 20 MG, DAILY

REACTIONS (3)
  - Speech disorder [Unknown]
  - Peripheral swelling [Unknown]
  - Intentional product misuse [Unknown]
